FAERS Safety Report 14929774 (Version 3)
Quarter: 2018Q2

REPORT INFORMATION
  Report Type: Spontaneous
  Country: HU (occurrence: HU)
  Receive Date: 20180523
  Receipt Date: 20180626
  Transmission Date: 20180711
  Serious: Yes (Death, Hospitalization, Other)
  Sender: FDA-Public Use
  Company Number: HU-TEVA-2018-HU-895174

PATIENT
  Age: 36 Year
  Sex: Female

DRUGS (1)
  1. LAMOTRIGINE. [Suspect]
     Active Substance: LAMOTRIGINE
     Indication: EPILEPSY
     Route: 065
     Dates: start: 201801

REACTIONS (5)
  - Multiple organ dysfunction syndrome [Fatal]
  - Blister [Fatal]
  - Drug reaction with eosinophilia and systemic symptoms [Fatal]
  - Rash maculo-papular [Fatal]
  - Toxic epidermal necrolysis [Fatal]

NARRATIVE: CASE EVENT DATE: 201802
